FAERS Safety Report 9426007 (Version 2)
Quarter: 2013Q4

REPORT INFORMATION
  Report Type: Spontaneous
  Country: US (occurrence: US)
  Receive Date: 20130730
  Receipt Date: 20131011
  Transmission Date: 20140711
  Serious: Yes (Other)
  Sender: FDA-Public Use
  Company Number: US-AMGEN-USASP2013052189

PATIENT
  Age: 63 Year
  Sex: Female
  Weight: 82.5 kg

DRUGS (3)
  1. PROCRIT [Suspect]
     Indication: RENAL FAILURE
     Dosage: 200000 UNK, UNK
     Route: 065
     Dates: end: 2013
  2. IRON [Suspect]
     Indication: PRODUCT USED FOR UNKNOWN INDICATION
     Dosage: UNK
     Route: 042
  3. OXYGEN [Concomitant]
     Dosage: UNK

REACTIONS (2)
  - Haemoglobin abnormal [Not Recovered/Not Resolved]
  - Malaise [Recovered/Resolved]
